FAERS Safety Report 9753266 (Version 1)
Quarter: 2013Q4

REPORT INFORMATION
  Report Type: Report from Study
  Country: BR (occurrence: BR)
  Receive Date: 20131213
  Receipt Date: 20131213
  Transmission Date: 20140711
  Serious: Yes (Hospitalization)
  Sender: FDA-Public Use
  Company Number: BR-NOVOPROD-395064

PATIENT
  Age: 35 Year
  Sex: Female

DRUGS (1)
  1. INSULIN DETEMIR FLEXPEN [Suspect]
     Indication: PRODUCT USED FOR UNKNOWN INDICATION
     Dosage: UNK
     Route: 058
     Dates: start: 20130902

REACTIONS (2)
  - Investigation [Unknown]
  - Exposure during pregnancy [Unknown]
